FAERS Safety Report 18363782 (Version 6)
Quarter: 2020Q4

REPORT INFORMATION
  Report Type: Report from Study
  Country: GR (occurrence: GR)
  Receive Date: 20201009
  Receipt Date: 20201117
  Transmission Date: 20210114
  Serious: Yes (Hospitalization)
  Sender: FDA-Public Use
  Company Number: GR-JNJFOC-20200946314

PATIENT
  Age: 62 Year
  Sex: Male
  Weight: 112 kg

DRUGS (11)
  1. ZINADOL [Concomitant]
     Active Substance: CEFUROXIME AXETIL
     Indication: PROPHYLAXIS
     Dates: start: 20200204
  2. NORVASC [Concomitant]
     Active Substance: AMLODIPINE BESYLATE
     Indication: HYPERTENSION
  3. INNOHEP [Concomitant]
     Active Substance: TINZAPARIN SODIUM
     Indication: PROPHYLAXIS
  4. VALTREX [Concomitant]
     Active Substance: VALACYCLOVIR HYDROCHLORIDE
     Indication: PROPHYLAXIS
     Dates: start: 20200204
  5. IXAZOMIB [Suspect]
     Active Substance: IXAZOMIB
     Indication: PLASMA CELL MYELOMA
     Dosage: D1, D8, D15 Q28D
     Route: 048
     Dates: start: 20200204, end: 20200922
  6. DEXAMETHASONE. [Suspect]
     Active Substance: DEXAMETHASONE
     Indication: PLASMA CELL MYELOMA
     Route: 048
     Dates: start: 20200204, end: 20200923
  7. XANAX [Concomitant]
     Active Substance: ALPRAZOLAM
     Indication: ANXIETY
  8. DARATUMUMAB [Suspect]
     Active Substance: DARATUMUMAB
     Dosage: D1 Q28D
     Route: 042
     Dates: start: 20200331, end: 20200721
  9. ENTECAVIR. [Concomitant]
     Active Substance: ENTECAVIR
     Indication: PROPHYLAXIS
     Dates: start: 20200204
  10. DARATUMUMAB [Suspect]
     Active Substance: DARATUMUMAB
     Indication: PLASMA CELL MYELOMA
     Dosage: D1 Q28D
     Route: 042
     Dates: start: 20200204, end: 20200331
  11. DARATUMUMAB [Suspect]
     Active Substance: DARATUMUMAB
     Dosage: D1 Q28D
     Route: 042
     Dates: start: 20200721, end: 20200915

REACTIONS (1)
  - West Nile viral infection [Recovered/Resolved with Sequelae]

NARRATIVE: CASE EVENT DATE: 20200924
